FAERS Safety Report 6035366-2 (Version None)
Quarter: 2009Q1

REPORT INFORMATION
  Report Type: 
  Country: None (occurrence: None)
  Receive Date: 20090109
  Receipt Date: 20090109
  Transmission Date: 20090719
  Serious: No
  Sender: FDA-Public Use
  Company Number: None

PATIENT
  Age: 77 Year
  Sex: Female
  Weight: 60 kg

DRUGS (1)
  1. VERSED [Suspect]
     Indication: PERIPHERAL VASCULAR DISORDER
     Dosage: 2 MG/2ML X2 IV BOLUS
     Route: 040
     Dates: start: 20090106

REACTIONS (4)
  - AGGRESSION [None]
  - CONFUSIONAL STATE [None]
  - INJECTION SITE ERYTHEMA [None]
  - INJECTION SITE URTICARIA [None]
